FAERS Safety Report 5628675-X (Version None)
Quarter: 2008Q1

REPORT INFORMATION
  Report Type: 
  Country: None (occurrence: None)
  Receive Date: 20080215
  Receipt Date: 20080215
  Transmission Date: 20080703
  Serious: Yes (Life-Threatening, Hospitalization, Other)
  Sender: FDA-Public Use
  Company Number: None

PATIENT
  Age: 43 Year
  Sex: Female
  Weight: 83.9154 kg

DRUGS (1)
  1. LACTULOSE [Suspect]
     Indication: HEPATITIS C
     Dosage: 30 ML Q DAU PO
     Route: 048
     Dates: start: 20080202, end: 20080206

REACTIONS (3)
  - AMMONIA INCREASED [None]
  - AMNESIA [None]
  - PHARMACEUTICAL PRODUCT COMPLAINT [None]
